FAERS Safety Report 5553709-0 (Version None)
Quarter: 2007Q4

REPORT INFORMATION
  Report Type: 
  Country: None (occurrence: None)
  Receive Date: 20071213
  Receipt Date: 20071207
  Transmission Date: 20080405
  Serious: Yes (Other)
  Sender: FDA-Public Use
  Company Number: PHEH2007US15668

PATIENT
  Sex: Female

DRUGS (1)
  1. AREDIA [Suspect]
     Indication: BREAST CANCER METASTATIC
     Dosage: UNK, UNK
     Dates: start: 20000101, end: 20051001

REACTIONS (11)
  - ANAPHYLACTIC SHOCK [None]
  - ECZEMA [None]
  - GASTRITIS [None]
  - HAEMATOCHEZIA [None]
  - INFECTION [None]
  - MIGRAINE [None]
  - MUSCLE DISORDER [None]
  - MUSCLE SPASMS [None]
  - PAIN IN JAW [None]
  - ULCER [None]
  - URTICARIA [None]
